FAERS Safety Report 8288307-1 (Version None)
Quarter: 2012Q2

REPORT INFORMATION
  Report Type: 
  Country: None (occurrence: None)
  Receive Date: 20120416
  Receipt Date: 20120407
  Transmission Date: 20120825
  Serious: Yes (Other)
  Sender: FDA-Public Use
  Company Number: CHNY2012BR000515

PATIENT
  Sex: Female
  Weight: 56 kg

DRUGS (3)
  1. SARIDON [Suspect]
     Indication: HEADACHE
     Dosage: 0.5 DF, QD
     Route: 048
  2. ACETAMINOPHEN, ASPIRIN AND CAFFEINE [Suspect]
     Indication: HEADACHE
     Dosage: 1 DF, 1-4 TIMES PER DAY
     Route: 048
  3. ORPHENADRINE, COMBINATIONS [Suspect]
     Indication: HEADACHE
     Dosage: 1 DF, QD

REACTIONS (6)
  - DEPRESSION [None]
  - DRY MOUTH [None]
  - BLOOD PRESSURE DECREASED [None]
  - ABDOMINAL PAIN UPPER [None]
  - HEADACHE [None]
  - DIZZINESS [None]
